FAERS Safety Report 14070889 (Version 1)
Quarter: 2017Q4

REPORT INFORMATION
  Report Type: Spontaneous
  Country: US (occurrence: US)
  Receive Date: 20171010
  Receipt Date: 20171010
  Transmission Date: 20180321
  Serious: No
  Sender: FDA-Public Use
  Company Number: US-JNJFOC-20170905374

PATIENT
  Age: 78 Year
  Sex: Male

DRUGS (15)
  1. SELENIUM [Concomitant]
     Active Substance: SELENIUM
  2. VITAMIN D3 [Concomitant]
     Active Substance: CHOLECALCIFEROL
  3. ATIVAN [Concomitant]
     Active Substance: LORAZEPAM
  4. COQ10 [Concomitant]
     Active Substance: UBIDECARENONE
  5. SENNA [Concomitant]
     Active Substance: SENNA LEAF\SENNOSIDES\SENNOSIDES A AND B
  6. MAGNESIUM [Concomitant]
     Active Substance: MAGNESIUM
  7. ZINC. [Concomitant]
     Active Substance: ZINC
  8. DUTASTERIDE. [Concomitant]
     Active Substance: DUTASTERIDE
  9. FISH OIL [Concomitant]
     Active Substance: FISH OIL
  10. CULTURELLE [Concomitant]
     Active Substance: LACTOBACILLUS RHAMNOSUS
  11. VALSARTAN. [Concomitant]
     Active Substance: VALSARTAN
  12. RAPAFLO [Concomitant]
     Active Substance: SILODOSIN
  13. IMBRUVICA [Suspect]
     Active Substance: IBRUTINIB
     Indication: MANTLE CELL LYMPHOMA
     Route: 048
     Dates: start: 20170420
  14. GABAPENTIN. [Concomitant]
     Active Substance: GABAPENTIN
  15. MACROGOL [Concomitant]
     Active Substance: POLYETHYLENE GLYCOLS

REACTIONS (3)
  - Incorrect dose administered [Unknown]
  - Sinusitis [Not Recovered/Not Resolved]
  - Off label use [Unknown]

NARRATIVE: CASE EVENT DATE: 20170420
